FAERS Safety Report 5489914-1 (Version None)
Quarter: 2007Q4

REPORT INFORMATION
  Report Type: 
  Country: None (occurrence: None)
  Receive Date: 20071018
  Receipt Date: 20071017
  Transmission Date: 20080405
  Serious: Yes (Other)
  Sender: FDA-Public Use
  Company Number: US-SHR-US-2007-013415

PATIENT
  Age: 44 Year
  Sex: Female
  Weight: 102 kg

DRUGS (5)
  1. YASMIN [Suspect]
     Dosage: 1 TAB(S), 1X/DAY
     Route: 048
     Dates: start: 20030101, end: 20070301
  2. FLOVENT [Concomitant]
     Indication: ASTHMA
     Dosage: UNK, 2X/DAY
  3. FLONASE [Concomitant]
     Indication: ASTHMA
     Route: 045
  4. ZYRTEC [Concomitant]
     Route: 048
  5. ALBUTEROL [Concomitant]
     Indication: ASTHMA
     Dosage: UNK, AS REQ'D

REACTIONS (4)
  - BASAL CELL CARCINOMA [None]
  - BREAST MASS [None]
  - DERMOID CYST OF OVARY [None]
  - HEADACHE [None]
